FAERS Safety Report 16878738 (Version 2)
Quarter: 2020Q3

REPORT INFORMATION
  Report Type: Spontaneous
  Country: US (occurrence: US)
  Receive Date: 20191002
  Receipt Date: 20200909
  Transmission Date: 20201102
  Serious: No
  Sender: FDA-Public Use
  Company Number: US-SA-2019SA266605

PATIENT

DRUGS (8)
  1. VITAMIN D3 [Concomitant]
     Active Substance: CHOLECALCIFEROL
  2. KEPPRA [Concomitant]
     Active Substance: LEVETIRACETAM
  3. PEPCID [Concomitant]
     Active Substance: FAMOTIDINE
  4. SIMVASTATIN. [Concomitant]
     Active Substance: SIMVASTATIN
  5. NAPROSYN [Concomitant]
     Active Substance: NAPROXEN
  6. AUBAGIO [Suspect]
     Active Substance: TERIFLUNOMIDE
     Indication: MULTIPLE SCLEROSIS
     Dosage: 14 MG, QD
     Route: 048
     Dates: start: 2017
  7. AUBAGIO [Suspect]
     Active Substance: TERIFLUNOMIDE
     Dosage: 14 MG, QD
     Route: 048
     Dates: start: 201808
  8. ACTOS [Concomitant]
     Active Substance: PIOGLITAZONE HYDROCHLORIDE

REACTIONS (4)
  - Migraine [Unknown]
  - Headache [Unknown]
  - Hypoaesthesia [Unknown]
  - Depression [Unknown]

NARRATIVE: CASE EVENT DATE: 202003
